FAERS Safety Report 8456998-8 (Version None)
Quarter: 2012Q2

REPORT INFORMATION
  Report Type: 
  Country: None (occurrence: None)
  Receive Date: 20120621
  Receipt Date: 20120606
  Transmission Date: 20120825
  Serious: Yes (Other)
  Sender: FDA-Public Use
  Company Number: TN-PURDUE-DEU-2012-0008903

PATIENT
  Age: 38 Year
  Sex: Male

DRUGS (6)
  1. TACROLIMUS [Interacting]
     Indication: IMMUNOSUPPRESSION
     Dosage: 10 MG, DAILY
     Route: 065
     Dates: start: 20080301
  2. MYCOPHENOLIC ACID [Concomitant]
     Indication: IMMUNOSUPPRESSION
     Dosage: 1500 MG, DAILY
     Route: 065
     Dates: start: 20080301
  3. TACROLIMUS [Interacting]
     Dosage: 8 MG, DAILY
  4. TACROLIMUS [Interacting]
     Dosage: 2 MG, DAILY
  5. THEOPHYLLINE [Suspect]
     Indication: POLYCYTHAEMIA
     Dosage: 300 MG, DAILY
     Route: 065
     Dates: start: 20090617
  6. PREDNISONE [Concomitant]
     Indication: IMMUNOSUPPRESSION
     Dosage: 10 MG, DAILY
     Route: 065
     Dates: start: 20080301

REACTIONS (3)
  - DRUG LEVEL INCREASED [None]
  - RENAL IMPAIRMENT [None]
  - DRUG INTERACTION [None]
